FAERS Safety Report 7975894-3 (Version None)
Quarter: 2011Q4

REPORT INFORMATION
  Report Type: 
  Country: None (occurrence: None)
  Receive Date: 20111213
  Receipt Date: 20111006
  Transmission Date: 20120403
  Serious: No
  Sender: FDA-Public Use
  Company Number: US-AMGEN-USASP2011051929

PATIENT
  Age: 66 Year
  Sex: Male

DRUGS (3)
  1. ENBREL [Suspect]
     Indication: RHEUMATOID ARTHRITIS
     Dosage: 50 MG, QWK
     Dates: start: 20050101, end: 20110409
  2. METHOTREXATE [Concomitant]
     Dosage: 7 MG, QWK
  3. PLAQUENIL [Concomitant]
     Dosage: 2 MG, UNK

REACTIONS (4)
  - DECREASED APPETITE [None]
  - LOWER RESPIRATORY TRACT INFECTION FUNGAL [None]
  - WEIGHT DECREASED [None]
  - RHEUMATOID ARTHRITIS [None]
